FAERS Safety Report 8971644 (Version 1)
Quarter: 2012Q4

REPORT INFORMATION
  Report Type: Report from Study
  Country: RU (occurrence: RU)
  Receive Date: 20121217
  Receipt Date: 20121217
  Transmission Date: 20130627
  Serious: Yes (Other)
  Sender: FDA-Public Use
  Company Number: RU-ROCHE-1167484

PATIENT
  Age: 38 Year
  Sex: Female

DRUGS (5)
  1. CAPECITABINE [Suspect]
     Indication: BREAST CANCER METASTATIC
     Dosage: On days 1-14 with a week break
     Route: 048
     Dates: start: 20110828
  2. DOCETAXEL [Concomitant]
     Indication: BREAST CANCER METASTATIC
     Dosage: in general 4 administratins
     Route: 065
     Dates: start: 20110828
  3. VINORELBINE [Concomitant]
     Indication: BREAST CANCER METASTATIC
     Route: 065
     Dates: start: 20120401
  4. GEMZAR [Concomitant]
     Indication: BREAST CANCER METASTATIC
     Route: 065
     Dates: start: 20120401
  5. HERCEPTIN [Concomitant]
     Indication: BREAST CANCER METASTATIC
     Dosage: 8 mg/kg-loading dose, then 6 mg/kg
     Route: 042
     Dates: start: 20100525, end: 20120401

REACTIONS (1)
  - Disease progression [Unknown]
